FAERS Safety Report 10694588 (Version 1)
Quarter: 2015Q1

REPORT INFORMATION
  Report Type: Spontaneous
  Country: CA (occurrence: CA)
  Receive Date: 20150107
  Receipt Date: 20150107
  Transmission Date: 20150721
  Serious: Yes (Hospitalization)
  Sender: FDA-Public Use
  Company Number: CA-CIPLA LTD.-2014CA02987

PATIENT

DRUGS (12)
  1. OMEPRAZOLE. [Suspect]
     Active Substance: OMEPRAZOLE
     Dosage: 20 MG OD
  2. DIGOXIN. [Suspect]
     Active Substance: DIGOXIN
     Dosage: 0.25 MG OD
  3. FUROSEMIDE. [Suspect]
     Active Substance: FUROSEMIDE
     Dosage: 40 MG OD
  4. METOLAZONE. [Suspect]
     Active Substance: METOLAZONE
     Dosage: 2.5 MG OD
  5. VENLAFAXINE [Suspect]
     Active Substance: VENLAFAXINE HYDROCHLORIDE
     Dosage: 112.5 MG OD
  6. LEVOTHYROXINE [Suspect]
     Active Substance: LEVOTHYROXINE
     Dosage: 200 UG OD
  7. DOMPERIDONE [Suspect]
     Active Substance: DOMPERIDONE
     Dosage: 10 MG TID
  8. IRBESARTAN. [Suspect]
     Active Substance: IRBESARTAN
     Dosage: 150 MG BID
  9. LIPITOR [Suspect]
     Active Substance: ATORVASTATIN CALCIUM
     Dosage: 10 MG OD
  10. METFORMIN [Suspect]
     Active Substance: METFORMIN HYDROCHLORIDE
     Dosage: 1000 MG BID
  11. CITALOPRAM [Suspect]
     Active Substance: CITALOPRAM HYDROBROMIDE
  12. GLYBURIDE. [Suspect]
     Active Substance: GLYBURIDE
     Dosage: 5 MG BID

REACTIONS (8)
  - Dizziness [Unknown]
  - Hypokalaemia [Recovering/Resolving]
  - Hypomagnesaemia [Recovering/Resolving]
  - Road traffic accident [Unknown]
  - Loss of consciousness [Unknown]
  - Electrocardiogram QT prolonged [Recovered/Resolved]
  - Syncope [Unknown]
  - Tachycardia [Unknown]
